FAERS Safety Report 18333886 (Version 1)
Quarter: 2020Q3

REPORT INFORMATION
  Report Type: Spontaneous
  Country: US (occurrence: US)
  Receive Date: 20200930
  Receipt Date: 20200930
  Transmission Date: 20201103
  Serious: Yes (Other)
  Sender: FDA-Public Use
  Company Number: None

PATIENT
  Age: 77 Year
  Sex: Female
  Weight: 89.1 kg

DRUGS (17)
  1. HYDROCODONE BITARTRATE AND ACETAMINOPHEN [Concomitant]
     Active Substance: ACETAMINOPHEN\HYDROCODONE BITARTRATE
  2. TYLENOL ALLERGY COMPLETE NIGHT TIME [Concomitant]
  3. ASPIRIN. [Concomitant]
     Active Substance: ASPIRIN
  4. TRAZODONE [Concomitant]
     Active Substance: TRAZODONE HYDROCHLORIDE
  5. MULTIVITAMIN [Concomitant]
     Active Substance: VITAMINS
  6. ZOFRAN [Concomitant]
     Active Substance: ONDANSETRON HYDROCHLORIDE
  7. ABIRATERONE. [Suspect]
     Active Substance: ABIRATERONE ACETATE
     Indication: PROSTATE CANCER
     Route: 048
     Dates: start: 20200123
  8. SIMVASTATIN. [Concomitant]
     Active Substance: SIMVASTATIN
  9. HYDROCHLOROTHIAZIDE. [Concomitant]
     Active Substance: HYDROCHLOROTHIAZIDE
  10. VITAMIN D3 [Concomitant]
     Active Substance: CHOLECALCIFEROL
  11. RAMIPRIL. [Concomitant]
     Active Substance: RAMIPRIL
  12. PREDNISONE. [Concomitant]
     Active Substance: PREDNISONE
  13. METOPROLOL. [Concomitant]
     Active Substance: METOPROLOL
  14. MYRBETRIQ [Concomitant]
     Active Substance: MIRABEGRON
  15. AMLODIPINE [Concomitant]
     Active Substance: AMLODIPINE BESYLATE
  16. COLACE [Concomitant]
     Active Substance: DOCUSATE SODIUM
  17. SENNA LAXATIVE [Concomitant]
     Active Substance: SENNOSIDES

REACTIONS (1)
  - Disease progression [None]

NARRATIVE: CASE EVENT DATE: 20200930
